FAERS Safety Report 10183274 (Version 1)
Quarter: 2014Q2

REPORT INFORMATION
  Report Type: Spontaneous
  Country: US (occurrence: US)
  Receive Date: 20140520
  Receipt Date: 20140520
  Transmission Date: 20141212
  Serious: Yes (Other)
  Sender: FDA-Public Use
  Company Number: US-JNJFOC-20140506569

PATIENT
  Sex: Male
  Weight: 83.92 kg

DRUGS (9)
  1. STELARA [Suspect]
     Indication: PSORIASIS
     Route: 058
     Dates: start: 2013
  2. PROTOPIC [Concomitant]
     Route: 065
  3. ELIDEL [Concomitant]
     Route: 065
  4. CLOBETASOL [Concomitant]
     Route: 065
  5. EFUDEX [Concomitant]
     Route: 065
  6. PLAVIX [Concomitant]
     Indication: CORONARY ARTERY DISEASE
     Route: 065
  7. TAMSULOSIN [Concomitant]
     Route: 065
  8. DIGOXIN [Concomitant]
     Indication: CORONARY ARTERY DISEASE
     Route: 065
  9. SOLARAZE [Concomitant]
     Route: 065

REACTIONS (1)
  - Renal impairment [Not Recovered/Not Resolved]
